FAERS Safety Report 20506342 (Version 1)
Quarter: 2022Q1

REPORT INFORMATION
  Report Type: Spontaneous
  Country: US (occurrence: None)
  Receive Date: 20220223
  Receipt Date: 20220223
  Transmission Date: 20220423
  Serious: Yes (Hospitalization)
  Sender: FDA-Public Use
  Company Number: None

PATIENT
  Age: 24 Year
  Sex: Female
  Weight: 72.5 kg

DRUGS (7)
  1. CYCLOPHOSPHAMIDE [Suspect]
     Active Substance: CYCLOPHOSPHAMIDE
     Dates: end: 20220207
  2. CYTARABINE [Suspect]
     Active Substance: CYTARABINE
     Dates: end: 20220214
  3. DOXORUBICIN HYDROCHLORIDE [Suspect]
     Active Substance: DOXORUBICIN HYDROCHLORIDE
     Dates: end: 20220124
  4. THIOGUANINE ANHYDROUS [Suspect]
     Active Substance: THIOGUANINE ANHYDROUS
     Dates: end: 20220220
  5. DEXAMETHASONE [Suspect]
     Active Substance: DEXAMETHASONE
     Dates: end: 20220130
  6. METHOTREXATE [Suspect]
     Active Substance: METHOTREXATE
     Dates: end: 20220214
  7. RITUXIMAB [Suspect]
     Active Substance: RITUXIMAB
     Dates: end: 20220117

REACTIONS (2)
  - Epistaxis [None]
  - Petechiae [None]

NARRATIVE: CASE EVENT DATE: 20220220
